FAERS Safety Report 9691726 (Version 1)
Quarter: 2013Q4

REPORT INFORMATION
  Report Type: Spontaneous
  Country: US (occurrence: US)
  Receive Date: 20131115
  Receipt Date: 20131115
  Transmission Date: 20140711
  Serious: Yes (Other)
  Sender: FDA-Public Use
  Company Number: US-TEVA-444522USA

PATIENT
  Age: 25 Year
  Sex: Female
  Weight: 46.31 kg

DRUGS (1)
  1. PARAGARD 380A [Suspect]
     Indication: CONTRACEPTION
     Dates: start: 20100426, end: 20131112

REACTIONS (3)
  - Device dislocation [Recovered/Resolved]
  - Vulvovaginal burning sensation [Unknown]
  - Medical device complication [Recovered/Resolved]
